FAERS Safety Report 18772592 (Version 2)
Quarter: 2021Q1

REPORT INFORMATION
  Report Type: Spontaneous
  Country: BR (occurrence: BR)
  Receive Date: 20210121
  Receipt Date: 20210129
  Transmission Date: 20210419
  Serious: Yes (Life-Threatening, Other)
  Sender: FDA-Public Use
  Company Number: BR-BAXTER-2021BAX001412

PATIENT
  Age: 38 Year
  Sex: Male

DRUGS (10)
  1. ETOPOSIDE. [Suspect]
     Active Substance: ETOPOSIDE
     Indication: BURKITT^S LYMPHOMA STAGE IV
     Dosage: 24?HOUR CONTINUOUS INFUSION FROM D1 TO D4, EVERY 21 DAYS; CYCLICAL (50 MG/M2,1 CYCLICAL)
     Route: 041
  2. DOXIL [Suspect]
     Active Substance: DOXORUBICIN HYDROCHLORIDE
     Indication: BURKITT^S LYMPHOMA STAGE IV
     Dosage: ON D1 OF THE FIRST 3 CYCLES; CYCLICAL (10 MG/M2,1 CYCLICAL)
     Route: 041
  3. METHOTREXATE. [Suspect]
     Active Substance: METHOTREXATE
     Indication: BURKITT^S LYMPHOMA STAGE IV
     Dosage: ON D1 OF THE FIRST 3 CYCLES; CYCLICAL (12 MG,1 CYCLICAL)
     Route: 037
  4. RITUXIMAB. [Suspect]
     Active Substance: RITUXIMAB
     Indication: BURKITT^S LYMPHOMA STAGE IV
     Dosage: ON D1 AND D5, EVERY 21 DAYS; CYCLICAL (375 MG,1 CYCLICAL)
     Route: 042
  5. TENOFOVIR + LAMIVUDINE [Concomitant]
     Active Substance: LAMIVUDINE\TENOFOVIR
     Indication: HIV INFECTION
     Route: 065
  6. VINCRISTINE [Suspect]
     Active Substance: VINCRISTINE
     Indication: BURKITT^S LYMPHOMA STAGE IV
     Dosage: 24?HOUR CONTINUOUS INFUSION FROM D1 TO D4, EVERY 21 DAYS; CYCLICAL (0.7 MG/M2,1 CYCLICAL)
     Route: 041
  7. PREDNISONE. [Suspect]
     Active Substance: PREDNISONE
     Indication: BURKITT^S LYMPHOMA STAGE IV
     Dosage: FROM D1 TO D5, EVERY 21 DAYS; CYCLICAL (60 MG/M2,1 CYCLICAL)
     Route: 048
  8. DOLUTEGRAVIR [Concomitant]
     Active Substance: DOLUTEGRAVIR
     Indication: HIV INFECTION
     Route: 065
  9. GRANULOCYTE COLONY STIMULATING FACTOR [Concomitant]
     Active Substance: GRANULOCYTE COLONY-STIMULATING FACTOR NOS
     Indication: PRODUCT USED FOR UNKNOWN INDICATION
     Dosage: ALL CYCLES FROM D6 TO D15; CYCLICAL (300 MCG,1 CYCLICAL)
     Route: 058
  10. CYCLOPHOSPHAMIDE. [Suspect]
     Active Substance: CYCLOPHOSPHAMIDE
     Indication: BURKITT^S LYMPHOMA STAGE IV
     Dosage: ON D5, EVERY 21 DAYS; CYCLICAL (750 MG/M2,1 CYCLICAL)
     Route: 042

REACTIONS (5)
  - Tumour lysis syndrome [Unknown]
  - Liver disorder [Unknown]
  - Leukopenia [Unknown]
  - Febrile neutropenia [Unknown]
  - Thrombocytopenia [Unknown]
